FAERS Safety Report 9097549 (Version 2)
Quarter: 2013Q2

REPORT INFORMATION
  Report Type: Spontaneous
  Country: US (occurrence: US)
  Receive Date: 20130212
  Receipt Date: 20130411
  Transmission Date: 20140414
  Serious: No
  Sender: FDA-Public Use
  Company Number: US-PFIZER INC-2013054558

PATIENT
  Age: 28 Year
  Sex: Female
  Weight: 76.19 kg

DRUGS (2)
  1. ADVIL MIGRAINE [Suspect]
     Indication: MIGRAINE
     Dosage: 200 MG, UNK
     Route: 048
     Dates: start: 20130206
  2. PERCOCET [Concomitant]
     Indication: PAIN
     Dosage: ONE OR TWO TABLETS 5/325 MG, EVERY 3-4 HOURS AS NEEDED
     Route: 048

REACTIONS (2)
  - Incorrect dose administered [Unknown]
  - Drug ineffective [Unknown]
